FAERS Safety Report 20263528 (Version 6)
Quarter: 2022Q2

REPORT INFORMATION
  Report Type: Report from Study
  Country: JP (occurrence: JP)
  Receive Date: 20211231
  Receipt Date: 20220408
  Transmission Date: 20220720
  Serious: Yes (Hospitalization, Other)
  Sender: FDA-Public Use
  Company Number: JP-BRISTOL-MYERS SQUIBB COMPANY-BMS-2021-142058

PATIENT
  Age: 58 Year
  Sex: Female
  Weight: 58 kg

DRUGS (19)
  1. CARBOPLATIN [Suspect]
     Active Substance: CARBOPLATIN
     Indication: Non-small cell lung cancer
     Dosage: 210 MILLIGRAM
     Route: 065
     Dates: start: 20210412, end: 20210521
  2. PACLITAXEL [Suspect]
     Active Substance: PACLITAXEL
     Indication: Non-small cell lung cancer
     Dosage: 67 MILLIGRAM
     Route: 065
     Dates: start: 20210412, end: 20210521
  3. RISEDRONATE SODIUM HEMI-PENTAHYDRATE [Concomitant]
     Active Substance: RISEDRONATE SODIUM HEMI-PENTAHYDRATE
     Indication: Product used for unknown indication
     Dosage: ONE TIME PER WEEK
     Route: 048
     Dates: start: 20210909
  4. FAMOTIDINE [Concomitant]
     Active Substance: FAMOTIDINE
     Indication: Product used for unknown indication
     Dosage: BD; TWICE PER DAY
     Route: 048
     Dates: start: 20210917
  5. URSODIOL [Concomitant]
     Active Substance: URSODIOL
     Indication: Adverse event
     Dosage: BD; TWICE PER DAY
     Route: 048
     Dates: start: 20211012, end: 20211214
  6. URSODIOL [Concomitant]
     Active Substance: URSODIOL
     Indication: Product used for unknown indication
     Dosage: DAILY; PER DAY
     Route: 048
     Dates: start: 20211215
  7. ATOVAQUONE [Concomitant]
     Active Substance: ATOVAQUONE
     Indication: Product used for unknown indication
     Dosage: 2 (UNSPECIFIED UNITS) DAILY; PER DAY
     Route: 048
     Dates: start: 20211019, end: 20211214
  8. PREDNISOLONE [Concomitant]
     Active Substance: PREDNISOLONE
     Indication: Product used for unknown indication
     Dosage: DAILY; PER DAY
     Route: 048
     Dates: start: 20211111, end: 20211224
  9. PREDNISOLONE [Concomitant]
     Active Substance: PREDNISOLONE
     Dosage: 10 MILLIGRAM, QD
     Route: 048
     Dates: start: 20211027
  10. PREDNISOLONE [Concomitant]
     Active Substance: PREDNISOLONE
     Dosage: DAILY; PER DAY
     Route: 048
     Dates: start: 20211111
  11. SULFAMETHOXAZOLE\TRIMETHOPRIM [Concomitant]
     Active Substance: SULFAMETHOXAZOLE\TRIMETHOPRIM
     Indication: Product used for unknown indication
     Dosage: 1 DAILY; PER DAY
     Route: 048
     Dates: start: 20210906
  12. INSULIN LISPRO [Concomitant]
     Active Substance: INSULIN LISPRO
     Indication: Product used for unknown indication
     Dosage: AS NEEDED
     Route: 058
     Dates: start: 20210910
  13. CODEINE PHOSPHATE [Concomitant]
     Active Substance: CODEINE PHOSPHATE
     Indication: Product used for unknown indication
     Dosage: 10 MILLIGRAM, PRN
     Route: 048
     Dates: start: 20210908
  14. HEPARINOID [Concomitant]
     Indication: Adverse event
     Dosage: DAILY; PER DAY
     Route: 061
     Dates: start: 20210919
  15. GLYCYRON [GLYCYRRHIZIC ACID, AMMONIUM SALT] [Concomitant]
     Indication: Adverse event
     Dosage: 4 ABSENT 2 ABSENT 2 ABSENT, BID
     Route: 048
     Dates: start: 20211012, end: 20211214
  16. GLYCYRON [GLYCYRRHIZIC ACID, AMMONIUM SALT] [Concomitant]
     Dosage: 3 ABSENT 3 ABSENT 3 ABSENT, QD
     Route: 048
     Dates: start: 20211215
  17. LOXOPROFEN SODIUM DIHYDRATE [Concomitant]
     Active Substance: LOXOPROFEN SODIUM DIHYDRATE
     Indication: Product used for unknown indication
     Dosage: 100 MILLIGRAM, QD
     Route: 061
     Dates: start: 20211117
  18. BETAMETHASONE VALERATE [Concomitant]
     Active Substance: BETAMETHASONE VALERATE
     Indication: Product used for unknown indication
     Dosage: 1 GRAM, QD
     Route: 061
     Dates: start: 20211214, end: 20211221
  19. DIFLUPREDNATE [Concomitant]
     Active Substance: DIFLUPREDNATE
     Indication: Product used for unknown indication
     Dosage: 1 GRAM, QD
     Route: 061
     Dates: start: 20211221

REACTIONS (1)
  - Drug-induced liver injury [Recovered/Resolved]

NARRATIVE: CASE EVENT DATE: 20211224
